FAERS Safety Report 7828929-2 (Version None)
Quarter: 2011Q4

REPORT INFORMATION
  Report Type: 
  Country: None (occurrence: None)
  Receive Date: 20111020
  Receipt Date: 20110706
  Transmission Date: 20120403
  Serious: No
  Sender: FDA-Public Use
  Company Number: US-BAYER-2011-058723

PATIENT
  Age: 77 Year
  Sex: Male

DRUGS (7)
  1. NEXIUM [Concomitant]
     Indication: GASTROOESOPHAGEAL REFLUX DISEASE
  2. VALTREX [Concomitant]
     Indication: HERPES ZOSTER
  3. CRESTOR [Concomitant]
     Indication: BLOOD CHOLESTEROL INCREASED
  4. FLOMAX [Concomitant]
     Indication: PROSTATOMEGALY
  5. ALLOPURINOL [Concomitant]
     Indication: GOUT
  6. LEVITRA [Suspect]
     Indication: ERECTILE DYSFUNCTION
     Dosage: 10 MG, UNK
     Route: 048
     Dates: start: 20110702, end: 20110704
  7. PROPECIA [Concomitant]
     Indication: PROSTATOMEGALY

REACTIONS (1)
  - ERECTILE DYSFUNCTION [None]
